FAERS Safety Report 10102519 (Version 2)
Quarter: 2014Q2

REPORT INFORMATION
  Report Type: Other
  Country: US (occurrence: US)
  Receive Date: 20140424
  Receipt Date: 20140625
  Transmission Date: 20141212
  Serious: Yes (Hospitalization, Other)
  Sender: FDA-Public Use
  Company Number: US-GSKPPD-2014GSK000258

PATIENT
  Sex: Male

DRUGS (4)
  1. AVANDIA [Suspect]
     Indication: DIABETES MELLITUS
     Route: 048
     Dates: start: 1999, end: 20010131
  2. LOPRESSOR [Concomitant]
  3. ENALAPRIL [Concomitant]
  4. NITROGLYCERIN [Concomitant]
     Route: 060

REACTIONS (1)
  - Myocardial infarction [Recovered/Resolved]
